FAERS Safety Report 16911319 (Version 1)
Quarter: 2019Q4

REPORT INFORMATION
  Report Type: Spontaneous
  Country: DE (occurrence: DE)
  Receive Date: 20191013
  Receipt Date: 20191013
  Transmission Date: 20200122
  Serious: Yes (Hospitalization)
  Sender: FDA-Public Use
  Company Number: DE-AMGEN-DEUSP2019164731

PATIENT
  Age: 78 Year
  Sex: Male
  Weight: 79 kg

DRUGS (14)
  1. PROLIA [Suspect]
     Active Substance: DENOSUMAB
     Indication: PRODUCT USED FOR UNKNOWN INDICATION
     Dosage: UNK
     Route: 065
     Dates: start: 20180402, end: 20181006
  2. VIGANTOLETTEN [Concomitant]
     Active Substance: CHOLECALCIFEROL
     Dosage: 1 DOSAGE FORM (1000)
  3. ACLASTA [Concomitant]
     Active Substance: ZOLEDRONIC ACID
     Dosage: 4 DOSAGE FORM (2014,2016,2017,2017)
  4. CANDESARTAN. [Concomitant]
     Active Substance: CANDESARTAN
     Dosage: 1 DOSAGE FORM (4 MILLIGRAM)
  5. XARELTO [Concomitant]
     Active Substance: RIVAROXABAN
     Dosage: 1 DOSAGE FORM (20)
  6. RELVAR [Concomitant]
     Active Substance: FLUTICASONE FUROATE\VILANTEROL TRIFENATATE
     Dosage: 1 PACKAGE (92/22)
     Dates: start: 201801
  7. FINASTERID [Concomitant]
     Active Substance: FINASTERIDE
     Dosage: 1 DOSAGE FORM (5 MILLIGRAM)
  8. TAMSULOSIN [Concomitant]
     Active Substance: TAMSULOSIN
     Dosage: 1 DOSAGE FORM (0.4 MILLIGRAM)
  9. LERCANIDIPINE [LERCANIDIPINE HYDROCHLORIDE] [Concomitant]
     Active Substance: LERCANIDIPINE HYDROCHLORIDE
     Dosage: 1 DOSAGE FORM (10 MILLIGRAM)
  10. COFFEIN [Concomitant]
     Active Substance: CAFFEINE
     Dosage: 0.5 DOSAGE FORM (0.2)
  11. FORSTEO [Suspect]
     Active Substance: TERIPARATIDE
     Indication: PRODUCT USED FOR UNKNOWN INDICATION
     Dosage: 1 DOSAGE FORM, QD
     Route: 058
     Dates: start: 20180811, end: 20181222
  12. BISOPROLOL [Concomitant]
     Active Substance: BISOPROLOL
     Dosage: 1 DOSAGE FORM (2.5 MILLIGRAM)
  13. ATORVASTATIN [Concomitant]
     Active Substance: ATORVASTATIN
     Dosage: 1 DOSAGE FORM (20 MILLIGRAM)
  14. AMIODARON [AMIODARONE] [Suspect]
     Active Substance: AMIODARONE
     Indication: PRODUCT USED FOR UNKNOWN INDICATION
     Dosage: 200 UNK
     Route: 065
     Dates: start: 20180116

REACTIONS (2)
  - Atypical pneumonia [Unknown]
  - Dyspnoea [Unknown]

NARRATIVE: CASE EVENT DATE: 201812
